FAERS Safety Report 7682428-X (Version None)
Quarter: 2011Q3

REPORT INFORMATION
  Report Type: 
  Country: None (occurrence: None)
  Receive Date: 20110815
  Receipt Date: 20110802
  Transmission Date: 20111222
  Serious: Yes (Other)
  Sender: FDA-Public Use
  Company Number: MX-GENZYME-MOZO-1000526

PATIENT
  Sex: Male
  Weight: 89 kg

DRUGS (12)
  1. CYCLOPHOSPHAMIDE [Concomitant]
     Indication: HAEMATOPOIETIC STEM CELL MOBILISATION
     Dosage: 7.5 MG/M2, UNK
     Route: 065
     Dates: start: 20110328
  2. MOZOBIL [Suspect]
     Indication: HAEMATOPOIETIC STEM CELL MOBILISATION
     Dosage: 0.24 MG/KG, QD
     Route: 065
     Dates: start: 20110331, end: 20110331
  3. RITUXIMAB [Concomitant]
     Indication: LYMPHOMA
     Dosage: UNK
     Dates: start: 20101217
  4. DOXORUBICIN HCL [Concomitant]
     Indication: LYMPHOMA
     Dosage: UNK
     Dates: start: 20101217
  5. METHOTREXATE [Concomitant]
     Indication: MYELOPROLIFERATIVE DISORDER
     Dosage: UNK
     Dates: start: 20101217
  6. ONCOVIN [Concomitant]
     Indication: LYMPHOMA
     Dosage: UNK
     Dates: start: 20101217
  7. CYCLOPHOSPHAMIDE [Concomitant]
     Indication: LYMPHOMA
     Dosage: UNK
     Dates: start: 20101217
  8. MESNA [Concomitant]
     Indication: HAEMATOPOIETIC STEM CELL MOBILISATION
     Dosage: UNK
     Route: 065
     Dates: start: 20110328
  9. MABTHERA [Concomitant]
     Indication: LYMPHOMA
     Dosage: 375 MG/M2, UNK
     Route: 042
     Dates: start: 20110512
  10. PREDNISOLONE [Concomitant]
     Indication: LYMPHOMA
     Dosage: UNK
     Dates: start: 20101217
  11. MOZOBIL [Suspect]
     Indication: LYMPHOMA
  12. NEUPOGEN [Concomitant]
     Indication: HAEMATOPOIETIC STEM CELL MOBILISATION
     Dosage: 10 MCG/KG, UNK
     Route: 065
     Dates: start: 20110328

REACTIONS (2)
  - DRUG INEFFECTIVE [None]
  - HAEMATOLOGY TEST ABNORMAL [None]
